FAERS Safety Report 14183859 (Version 2)
Quarter: 2018Q2

REPORT INFORMATION
  Report Type: Report from Study
  Country: UA (occurrence: UA)
  Receive Date: 20171113
  Receipt Date: 20180613
  Transmission Date: 20180711
  Serious: Yes (Death)
  Sender: FDA-Public Use
  Company Number: UA-TEVA-708421ISR

PATIENT
  Age: 47 Year
  Sex: Male
  Weight: 73 kg

DRUGS (4)
  1. CISPLATIN. [Suspect]
     Active Substance: CISPLATIN
     Indication: NON-SMALL CELL LUNG CANCER
     Route: 042
     Dates: start: 20160301, end: 20160626
  2. NEULASTA [Suspect]
     Active Substance: PEGFILGRASTIM
     Indication: COLONY STIMULATING FACTOR PROPHYLAXIS
     Dosage: LONQUEX 6 MG OR NEULASTA 6 MG OR PLACEBO
     Route: 058
     Dates: start: 20160302, end: 20160627
  3. PACLITAXEL. [Suspect]
     Active Substance: PACLITAXEL
     Indication: NON-SMALL CELL LUNG CANCER
     Route: 042
     Dates: start: 20160229, end: 20160625
  4. LONQUEX [Suspect]
     Active Substance: LIPEGFILGRASTIM
     Indication: COLONY STIMULATING FACTOR PROPHYLAXIS
     Dosage: LONQUEX 6 MG OR NEULASTA 6 MG OR PLACEBO
     Route: 058
     Dates: start: 20160302, end: 20160627

REACTIONS (1)
  - Non-small cell lung cancer [Fatal]

NARRATIVE: CASE EVENT DATE: 20160822
